FAERS Safety Report 7775809-7 (Version None)
Quarter: 2011Q3

REPORT INFORMATION
  Report Type: 
  Country: None (occurrence: None)
  Receive Date: 20110923
  Receipt Date: 20110921
  Transmission Date: 20111222
  Serious: Yes (Death)
  Sender: FDA-Public Use
  Company Number: JP-ABBOTT-11P-087-0850912-00

PATIENT
  Sex: Female
  Weight: 44.9 kg

DRUGS (15)
  1. ISONIAZID [Concomitant]
     Indication: ANTIBIOTIC PROPHYLAXIS
     Route: 048
     Dates: start: 20091204
  2. AZOSEMIDE [Concomitant]
     Indication: PRODUCT USED FOR UNKNOWN INDICATION
     Dosage: AFTER BREAKFAST
     Dates: start: 20010601
  3. RALOXIFENE HYDROCHLORIDE [Concomitant]
     Indication: OSTEOPOROSIS
     Route: 048
     Dates: start: 20091211
  4. MIGLITOL [Concomitant]
     Indication: TYPE 2 DIABETES MELLITUS
     Route: 048
     Dates: start: 20091127, end: 20100406
  5. PREDNISOLONE [Concomitant]
     Indication: RHEUMATOID ARTHRITIS
     Route: 048
     Dates: start: 20020604
  6. ALLOPURINOL [Concomitant]
     Indication: HYPERURICAEMIA
     Route: 048
     Dates: start: 20091204
  7. ETIZOLAM [Concomitant]
     Indication: SLEEP DISORDER
     Dates: start: 20091228
  8. UBIDECARENONE [Concomitant]
     Indication: PRODUCT USED FOR UNKNOWN INDICATION
     Dosage: AFTER EACH MEAL
     Route: 048
     Dates: start: 20010601
  9. ALFACALCIDOL [Concomitant]
     Indication: PRODUCT USED FOR UNKNOWN INDICATION
     Dosage: AFTER SUPPER
     Route: 048
     Dates: start: 20091225
  10. SITAGLIPTIN PHOSPHATE HYDRATE [Concomitant]
     Indication: TYPE 2 DIABETES MELLITUS
     Dates: start: 20100407
  11. CARVEDILOL [Concomitant]
     Indication: PRODUCT USED FOR UNKNOWN INDICATION
     Dosage: AFTER BREAKFAST
     Route: 048
     Dates: start: 20010601
  12. HUMIRA [Suspect]
     Indication: RHEUMATOID ARTHRITIS
     Route: 058
     Dates: start: 20091205
  13. DILAZEP DIHYDROCHLORIDE HYDRATE [Concomitant]
     Indication: PRODUCT USED FOR UNKNOWN INDICATION
     Dosage: AFTER EACH MEAL
     Route: 048
     Dates: start: 20110601
  14. LOSARTAN POTASSIUM [Concomitant]
     Indication: PRODUCT USED FOR UNKNOWN INDICATION
     Route: 048
     Dates: start: 20091225
  15. METILDIGOXIN [Concomitant]
     Indication: PRODUCT USED FOR UNKNOWN INDICATION
     Route: 048
     Dates: start: 20010601

REACTIONS (3)
  - CARDIAC FAILURE CHRONIC [None]
  - ATRIAL FIBRILLATION [None]
  - BUNDLE BRANCH BLOCK LEFT [None]
